FAERS Safety Report 4446855-6 (Version None)
Quarter: 2004Q3

REPORT INFORMATION
  Report Type: 
  Country: None (occurrence: None)
  Receive Date: 20040902
  Receipt Date: 20040820
  Transmission Date: 20050211
  Serious: Yes (Hospitalization, Other)
  Sender: FDA-Public Use
  Company Number: 045-0982-M0100001

PATIENT
  Age: 43 Year
  Sex: Male
  Weight: 60 kg

DRUGS (7)
  1. FOSPHENYTOIN SODIUM [Suspect]
     Indication: COMPLEX PARTIAL SEIZURES
     Dosage: 1.35 GRAM, INTRAVENOUS
     Route: 042
     Dates: start: 20010323, end: 20010323
  2. FOSPHENYTOIN SODIUM [Suspect]
     Indication: STATUS EPILEPTICUS
     Dosage: 1.35 GRAM, INTRAVENOUS
     Route: 042
     Dates: start: 20010323, end: 20010323
  3. DIAZEPAM [Concomitant]
  4. NITROGLYCERIN [Concomitant]
  5. ATORVASTATIN CALCIUM [Concomitant]
  6. METOPROLOL SUCCINATE [Concomitant]
  7. ALBYL-ENTEROSOLUBILE (ACETYLSALICYLIC ACID, MAGNESIUM OXIDE) [Concomitant]

REACTIONS (1)
  - ANAPHYLACTIC SHOCK [None]
